FAERS Safety Report 23531148 (Version 3)
Quarter: 2024Q2

REPORT INFORMATION
  Report Type: Spontaneous
  Country: GB (occurrence: GB)
  Receive Date: 20240216
  Receipt Date: 20240408
  Transmission Date: 20240716
  Serious: No
  Sender: FDA-Public Use
  Company Number: GB-PFIZER INC-PV202400014876

PATIENT
  Age: 8 Year

DRUGS (1)
  1. NGENLA [Suspect]
     Active Substance: SOMATROGON-GHLA
     Indication: Growth hormone deficiency
     Dosage: UNK

REACTIONS (6)
  - Product odour abnormal [Unknown]
  - Injection site pain [Unknown]
  - Fear of injection [Unknown]
  - Injection site bruising [Unknown]
  - Anxiety [Unknown]
  - Pain [Unknown]
